FAERS Safety Report 9685953 (Version 2)
Quarter: 2013Q4

REPORT INFORMATION
  Report Type: Spontaneous
  Country: US (occurrence: US)
  Receive Date: 20131113
  Receipt Date: 20131113
  Transmission Date: 20140711
  Serious: No
  Sender: FDA-Public Use
  Company Number: US-ALLERGAN-1310353US

PATIENT
  Sex: Male

DRUGS (6)
  1. COMBIGAN[R] [Suspect]
     Indication: GLAUCOMA
     Dosage: 1 GTT, BID
     Route: 047
  2. FENOFIBRATE [Concomitant]
     Indication: BLOOD CHOLESTEROL ABNORMAL
     Dosage: 200 MG, QD
     Route: 048
  3. AMLODIPINE BENAZEPRIL [Concomitant]
     Indication: HYPERTENSION
     Dosage: UNK UNK, QD
  4. GENERIC FLOMAX [Concomitant]
     Indication: PROSTATIC DISORDER
     Dosage: 4 MG, QD
     Route: 048
  5. COUMADIN                           /00014802/ [Concomitant]
     Indication: CARDIAC DISORDER
     Dosage: 5 MG, QD
     Route: 048
  6. LATANOPROST [Concomitant]
     Indication: PRODUCT USED FOR UNKNOWN INDICATION
     Dosage: 2 GTT, QHS
     Route: 047

REACTIONS (2)
  - Ocular discomfort [Recovered/Resolved]
  - Eye pain [Recovered/Resolved]
